FAERS Safety Report 12328641 (Version 1)
Quarter: 2016Q2

REPORT INFORMATION
  Report Type: Spontaneous
  Country: US (occurrence: US)
  Receive Date: 20160503
  Receipt Date: 20160503
  Transmission Date: 20160815
  Serious: No
  Sender: FDA-Public Use
  Company Number: US-BEH-2015049809

PATIENT
  Age: 62 Year
  Sex: Female
  Weight: 97.5 kg

DRUGS (33)
  1. HIZENTRA [Suspect]
     Active Substance: HUMAN IMMUNOGLOBULIN G
     Dosage: 2 GM 10 ML VIAL
     Route: 058
  2. CEFDINIR. [Concomitant]
     Active Substance: CEFDINIR
  3. ARTIFICIAL TEARS [Concomitant]
     Active Substance: GLYCERIN\HYPROMELLOSES\POLYETHYLENE GLYCOL 400
  4. FLUTICASONE PROPIONATE. [Concomitant]
     Active Substance: FLUTICASONE PROPIONATE
  5. ASPIRIN. [Concomitant]
     Active Substance: ASPIRIN
  6. MUCINEX D [Concomitant]
     Active Substance: GUAIFENESIN\PSEUDOEPHEDRINE HYDROCHLORIDE
  7. MIDRIN [Concomitant]
     Active Substance: ACETAMINOPHEN\DICHLORALPHENAZONE\ISOMETHEPTENE
  8. ACETAMINOPHEN. [Concomitant]
     Active Substance: ACETAMINOPHEN
  9. EPIPEN [Concomitant]
     Active Substance: EPINEPHRINE
  10. ACETAMINOPHEN\HYDROCODONE BITARTRATE [Concomitant]
     Active Substance: ACETAMINOPHEN\HYDROCODONE BITARTRATE
  11. LEXAPRO [Concomitant]
     Active Substance: ESCITALOPRAM OXALATE
  12. ADDERALL [Concomitant]
     Active Substance: AMPHETAMINE ASPARTATE\AMPHETAMINE SULFATE\DEXTROAMPHETAMINE SACCHARATE\DEXTROAMPHETAMINE SULFATE
  13. OPTIVAR [Concomitant]
     Active Substance: AZELASTINE HYDROCHLORIDE
     Dosage: 0.05%
  14. VENTOLIN [Concomitant]
     Active Substance: ALBUTEROL SULFATE
  15. HIZENTRA [Suspect]
     Active Substance: HUMAN IMMUNOGLOBULIN G
     Indication: IMMUNODEFICIENCY COMMON VARIABLE
     Dosage: STARTED IN 2012
     Dates: start: 2012
  16. DIPHENHYDRAMINE. [Concomitant]
     Active Substance: DIPHENHYDRAMINE
  17. NEXIUM [Concomitant]
     Active Substance: ESOMEPRAZOLE MAGNESIUM
  18. PROBIOTIC [Concomitant]
     Active Substance: PROBIOTICS NOS
  19. AYR SALINE [Concomitant]
     Dosage: 0.65%
  20. MOVE FREE ULTRA [Concomitant]
  21. WOMEN^S DAILY [Concomitant]
     Dosage: CAPLET
  22. AMBIEN [Concomitant]
     Active Substance: ZOLPIDEM TARTRATE
  23. FLOVENT [Concomitant]
     Active Substance: FLUTICASONE PROPIONATE
  24. LIDOCAINE/PRILOCAINE [Concomitant]
  25. HOMATROPINE METHYLBROMIDE\HYDROCODONE BITARTRATE [Concomitant]
     Active Substance: HOMATROPINE METHYLBROMIDE\HYDROCODONE BITARTRATE
  26. ACETAMINOPHEN. [Concomitant]
     Active Substance: ACETAMINOPHEN
  27. ZYRTEC [Concomitant]
     Active Substance: CETIRIZINE HYDROCHLORIDE
  28. HIZENTRA [Suspect]
     Active Substance: HUMAN IMMUNOGLOBULIN G
     Dosage: 4 GM 20 ML VIAL
     Route: 058
  29. DEPAKOTE [Concomitant]
     Active Substance: DIVALPROEX SODIUM
  30. LORAZEPAM. [Concomitant]
     Active Substance: LORAZEPAM
  31. TUMS [Concomitant]
     Active Substance: CALCIUM CARBONATE
  32. VITAMIN D [Concomitant]
     Active Substance: CHOLECALCIFEROL
  33. TYLENOL WITH CODEINE [Concomitant]
     Active Substance: ACETAMINOPHEN\CODEINE PHOSPHATE

REACTIONS (2)
  - Gingival discolouration [Recovering/Resolving]
  - Tooth infection [Recovering/Resolving]

NARRATIVE: CASE EVENT DATE: 20150311
